FAERS Safety Report 14473676 (Version 1)
Quarter: 2018Q1

REPORT INFORMATION
  Report Type: Spontaneous
  Country: US (occurrence: US)
  Receive Date: 20180201
  Receipt Date: 20180201
  Transmission Date: 20180509
  Serious: No
  Sender: FDA-Public Use
  Company Number: US-BAYER-2018-019677

PATIENT

DRUGS (1)
  1. MIRALAX [Suspect]
     Active Substance: POLYETHYLENE GLYCOL 3350

REACTIONS (4)
  - Product use issue [None]
  - Poor quality drug administered [Unknown]
  - Product taste abnormal [None]
  - Product odour abnormal [None]

NARRATIVE: CASE EVENT DATE: 20180129
